FAERS Safety Report 17988497 (Version 1)
Quarter: 2020Q3

REPORT INFORMATION
  Report Type: Spontaneous
  Country: US (occurrence: US)
  Receive Date: 20200706
  Receipt Date: 20200706
  Transmission Date: 20201103
  Serious: No
  Sender: FDA-Public Use
  Company Number: None

PATIENT
  Age: 72 Year
  Sex: Male
  Weight: 71 kg

DRUGS (6)
  1. VORICONZOLE [Suspect]
     Active Substance: VORICONAZOLE
     Indication: ANTIFUNGAL PROPHYLAXIS
     Route: 048
  2. VORICONAZOLE. [Suspect]
     Active Substance: VORICONAZOLE
     Indication: ANTIFUNGAL PROPHYLAXIS
     Route: 048
  3. CALCIUM CARBONATE 1000MG [Concomitant]
     Dates: start: 20200413, end: 20200421
  4. FAMOTIDINE 20MG [Concomitant]
     Active Substance: FAMOTIDINE
     Dates: start: 20200413, end: 20200504
  5. ONDANSETRON 8MG [Concomitant]
     Active Substance: ONDANSETRON
     Dates: start: 20200413, end: 20200504
  6. ACYCLOVIR 400MG [Concomitant]
     Active Substance: ACYCLOVIR
     Dates: start: 20200413, end: 20200504

REACTIONS (2)
  - Drug intolerance [None]
  - Hallucination [None]

NARRATIVE: CASE EVENT DATE: 20200421
